FAERS Safety Report 19512462 (Version 1)
Quarter: 2021Q3

REPORT INFORMATION
  Report Type: Report from Study
  Country: CA (occurrence: CA)
  Receive Date: 20210709
  Receipt Date: 20210709
  Transmission Date: 20211014
  Serious: Yes (Other)
  Sender: FDA-Public Use
  Company Number: CA-TAKEDA-2021TUS042248

PATIENT
  Age: 76 Year
  Sex: Male

DRUGS (2)
  1. VEDOLIZUMAB [Suspect]
     Active Substance: VEDOLIZUMAB
     Indication: COLITIS ULCERATIVE
     Dosage: 300 MILLIGRAM
     Route: 042
     Dates: start: 20210623
  2. PREDNISONE. [Concomitant]
     Active Substance: PREDNISONE
     Dosage: UNK
     Route: 048

REACTIONS (9)
  - Heart rate increased [Unknown]
  - Nausea [Unknown]
  - Gastrointestinal pain [Unknown]
  - Irritability [Unknown]
  - Headache [Unknown]
  - Chest discomfort [Unknown]
  - Increased bronchial secretion [Unknown]
  - Anxiety [Unknown]
  - Deafness [Unknown]
